FAERS Safety Report 20907305 (Version 2)
Quarter: 2022Q3

REPORT INFORMATION
  Report Type: Spontaneous
  Country: IT (occurrence: IT)
  Receive Date: 20220602
  Receipt Date: 20220804
  Transmission Date: 20221026
  Serious: Yes (Other)
  Sender: FDA-Public Use
  Company Number: IT-AMGEN-ITASP2022091613

PATIENT

DRUGS (2)
  1. ADALIMUMAB [Suspect]
     Active Substance: ADALIMUMAB
     Indication: Colitis ulcerative
     Route: 065
  2. ADALIMUMAB [Suspect]
     Active Substance: ADALIMUMAB
     Indication: Crohn^s disease

REACTIONS (9)
  - Surgery [Unknown]
  - Prostate cancer [Unknown]
  - Leukopenia [Unknown]
  - Arthralgia [Unknown]
  - Therapy non-responder [Unknown]
  - Alopecia [Unknown]
  - Injection site pain [Unknown]
  - Injection site pruritus [Unknown]
  - Hypersensitivity [Unknown]
